APPROVED DRUG PRODUCT: NABUMETONE
Active Ingredient: NABUMETONE
Strength: 750MG
Dosage Form/Route: TABLET;ORAL
Application: A090516 | Product #002
Applicant: AUROBINDO PHARMA USA INC
Approved: Jul 12, 2010 | RLD: No | RS: No | Type: DISCN